FAERS Safety Report 6003059-3 (Version None)
Quarter: 2008Q4

REPORT INFORMATION
  Report Type: 
  Country: None (occurrence: None)
  Receive Date: 20081215
  Receipt Date: 20081205
  Transmission Date: 20090506
  Serious: Yes (Other)
  Sender: FDA-Public Use
  Company Number: US-PFIZER INC-2008089628

PATIENT
  Sex: Female
  Weight: 90.7 kg

DRUGS (9)
  1. GLUCOTROL [Suspect]
     Indication: DIABETES MELLITUS
     Dates: start: 20080101, end: 20080101
  2. GLIPIZIDE [Suspect]
     Indication: DIABETES MELLITUS
  3. VALSARTAN [Concomitant]
     Dosage: 80 MG, UNK
  4. NEXIUM [Concomitant]
     Dosage: 40 MG, UNK
  5. LIPITOR [Concomitant]
     Dosage: 20 MG, UNK
  6. ATENOLOL [Concomitant]
     Dosage: 50 MG, UNK
  7. KLOR-CON [Concomitant]
     Dosage: 10 UNK, UNK
  8. HYDROCHLOROTHIAZIDE [Concomitant]
     Dosage: 25 MG, UNK
  9. GLUCOTROL XL [Suspect]

REACTIONS (5)
  - DIZZINESS [None]
  - DYSSTASIA [None]
  - HYPERHIDROSIS [None]
  - MEDICATION ERROR [None]
  - PYREXIA [None]
